FAERS Safety Report 26084016 (Version 1)
Quarter: 2025Q4

REPORT INFORMATION
  Report Type: Spontaneous
  Country: US (occurrence: US)
  Receive Date: 20251124
  Receipt Date: 20251124
  Transmission Date: 20260118
  Serious: No
  Sender: ELITE
  Company Number: US-ELITEPHARMA-2025ELSPO00222

PATIENT
  Age: 35 Year
  Sex: Female
  Weight: 70 kg

DRUGS (2)
  1. LISDEXAMFETAMINE DIMESYLATE [Suspect]
     Active Substance: LISDEXAMFETAMINE DIMESYLATE
     Indication: Attention deficit hyperactivity disorder
     Route: 065
     Dates: start: 20250910, end: 20250917
  2. TRINTELLIX [Concomitant]
     Active Substance: VORTIOXETINE HYDROBROMIDE
     Indication: Depression
     Route: 065

REACTIONS (7)
  - Brain fog [Recovered/Resolved]
  - Dysstasia [Recovered/Resolved]
  - Memory impairment [Recovered/Resolved]
  - Headache [Recovered/Resolved]
  - Dizziness [Recovered/Resolved]
  - Therapeutic response decreased [Unknown]
  - Product substitution issue [Unknown]

NARRATIVE: CASE EVENT DATE: 20250910
